FAERS Safety Report 7048318-0 (Version None)
Quarter: 2010Q4

REPORT INFORMATION
  Report Type: 
  Country: None (occurrence: None)
  Receive Date: 20101015
  Receipt Date: 20101007
  Transmission Date: 20110411
  Serious: Yes (Other)
  Sender: FDA-Public Use
  Company Number: US-WYE-H18038410

PATIENT
  Sex: Female
  Weight: 53.57 kg

DRUGS (1)
  1. PANTOPRAZOLE [Suspect]
     Indication: GASTROOESOPHAGEAL REFLUX DISEASE
     Route: 048
     Dates: start: 20080101

REACTIONS (3)
  - CHOLECYSTECTOMY [None]
  - DRUG INEFFECTIVE [None]
  - HIATUS HERNIA [None]
